FAERS Safety Report 18136136 (Version 2)
Quarter: 2020Q3

REPORT INFORMATION
  Report Type: Spontaneous
  Country: US (occurrence: US)
  Receive Date: 20200811
  Receipt Date: 20200813
  Transmission Date: 20201103
  Serious: No
  Sender: FDA-Public Use
  Company Number: US-BIOGEN-2020BI00909913

PATIENT
  Sex: Female

DRUGS (1)
  1. TECFIDERA [Suspect]
     Active Substance: DIMETHYL FUMARATE
     Indication: MULTIPLE SCLEROSIS
     Route: 065
     Dates: start: 20141219

REACTIONS (6)
  - Vaginal infection [Unknown]
  - Alopecia [Unknown]
  - Fungal infection [Unknown]
  - Acne cystic [Unknown]
  - Constipation [Unknown]
  - Diarrhoea [Unknown]
